FAERS Safety Report 8063020-4 (Version None)
Quarter: 2012Q1

REPORT INFORMATION
  Report Type: 
  Country: None (occurrence: None)
  Receive Date: 20120123
  Receipt Date: 20120117
  Transmission Date: 20120608
  Serious: Yes (Disabling, Other)
  Sender: FDA-Public Use
  Company Number: IT-PFIZER INC-2011298264

PATIENT
  Age: 62 Year
  Sex: Male

DRUGS (10)
  1. AMIKACIN [Concomitant]
     Dosage: 1G DAILY
     Dates: start: 20111201, end: 20111201
  2. REMIFENTANIL [Concomitant]
  3. TYGACIL [Suspect]
     Dosage: 50 MG, 2X/DAY
     Dates: end: 20111214
  4. ANIDULAFUNGIN [Concomitant]
     Route: 042
  5. TYGACIL [Suspect]
     Indication: INFECTIOUS PERITONITIS
     Dosage: 50 MG, 1X/DAY
     Route: 042
     Dates: start: 20111121, end: 20111214
  6. FONDAPARINUX [Concomitant]
     Route: 058
  7. PANTOPRAZOLE [Concomitant]
     Route: 042
  8. MIDAZOLAM [Concomitant]
  9. INSULIN [Concomitant]
  10. COLISTIN [Concomitant]
     Dosage: UNK

REACTIONS (3)
  - HYPERNATRAEMIA [None]
  - RHABDOMYOLYSIS [None]
  - PARALYSIS FLACCID [None]
